FAERS Safety Report 7441909-4 (Version None)
Quarter: 2011Q2

REPORT INFORMATION
  Report Type: 
  Country: None (occurrence: None)
  Receive Date: 20110425
  Receipt Date: 20110425
  Transmission Date: 20111010
  Serious: Yes (Death)
  Sender: FDA-Public Use
  Company Number: None

PATIENT
  Age: 66 Year
  Sex: Female
  Weight: 77.7 kg

DRUGS (5)
  1. ORENCIA [Suspect]
     Indication: RHEUMATOID ARTHRITIS
     Dosage: ORENCIA Q 4 WKS IV
     Route: 042
     Dates: start: 20100209
  2. ORENCIA [Suspect]
     Indication: RHEUMATOID ARTHRITIS
     Dosage: ORENCIA Q 4 WKS IV
     Route: 042
     Dates: start: 20100223
  3. ORENCIA [Suspect]
     Indication: RHEUMATOID ARTHRITIS
     Dosage: ORENCIA Q 4 WKS IV
     Route: 042
     Dates: start: 20100406
  4. ORENCIA [Suspect]
     Indication: RHEUMATOID ARTHRITIS
     Dosage: ORENCIA Q 4 WKS IV
     Route: 042
     Dates: start: 20100309
  5. REMICADE [Suspect]
     Dosage: REMICADE Q 8 WKS IV
     Route: 042
     Dates: start: 20010103, end: 20091129

REACTIONS (2)
  - HEPATITIS [None]
  - DRUG EFFECT DECREASED [None]
